FAERS Safety Report 24409059 (Version 1)
Quarter: 2024Q4

REPORT INFORMATION
  Report Type: Spontaneous
  Country: US (occurrence: US)
  Receive Date: 20241008
  Receipt Date: 20241008
  Transmission Date: 20250114
  Serious: No
  Sender: STRIDES
  Company Number: US-STRIDES ARCOLAB LIMITED-2024SP004237

PATIENT
  Age: 51 Year
  Sex: Male

DRUGS (1)
  1. PREDNISOLONE [Suspect]
     Active Substance: PREDNISOLONE
     Indication: Hypercalcaemia
     Dosage: UNK (DOSE: HIGH DOSE)
     Route: 065

REACTIONS (2)
  - Hypervolaemia [Unknown]
  - Immune system disorder [Unknown]
